FAERS Safety Report 5477135-8 (Version None)
Quarter: 2007Q4

REPORT INFORMATION
  Report Type: 
  Country: None (occurrence: None)
  Receive Date: 20071004
  Receipt Date: 20071001
  Transmission Date: 20080405
  Serious: Yes (Hospitalization)
  Sender: FDA-Public Use
  Company Number: A0684881A

PATIENT
  Age: 56 Year
  Sex: Male

DRUGS (4)
  1. ECOTRIN REGULAR STRENGTH TABLETS [Suspect]
     Dosage: 325MG PER DAY
     Dates: start: 20040301
  2. SUPER POLIGRIP FREE DENTURE ADHESIVE CREAM [Suspect]
     Indication: TOOTH DISORDER
     Dates: start: 20030101
  3. SUPER POLIGRIP ORIGINAL DENTURE ADHESIVE CREAM [Suspect]
     Indication: TOOTH DISORDER
  4. METOPROLOL [Concomitant]

REACTIONS (10)
  - AGITATION [None]
  - CARDIAC FLUTTER [None]
  - CHEST DISCOMFORT [None]
  - CHEST PAIN [None]
  - DEHYDRATION [None]
  - EMOTIONAL DISTRESS [None]
  - HEART RATE ABNORMAL [None]
  - INJECTION SITE BRUISING [None]
  - MYOCARDIAL INFARCTION [None]
  - THROMBOSIS [None]
